FAERS Safety Report 23723481 (Version 2)
Quarter: 2024Q4

REPORT INFORMATION
  Report Type: Spontaneous
  Country: US (occurrence: US)
  Receive Date: 20240409
  Receipt Date: 20241012
  Transmission Date: 20250115
  Serious: No
  Sender: SANOFI AVENTIS
  Company Number: US-SA-SAC20240402000293

PATIENT
  Age: 16 Year
  Sex: Male
  Weight: 70.76 kg

DRUGS (4)
  1. DUPIXENT [Suspect]
     Active Substance: DUPILUMAB
     Indication: Dermatitis atopic
     Dosage: 600 MG, 1X
     Route: 058
  2. DUPIXENT [Suspect]
     Active Substance: DUPILUMAB
     Dosage: 300 MG, QOW
     Route: 058
  3. VITAMINS [Concomitant]
     Active Substance: VITAMINS
     Route: 065
  4. EUCRISA [Concomitant]
     Active Substance: CRISABOROLE
     Route: 065

REACTIONS (6)
  - Dry skin [Recovered/Resolved]
  - Product dose omission issue [Unknown]
  - Lymphadenopathy [Not Recovered/Not Resolved]
  - Inflammation [Not Recovered/Not Resolved]
  - Nipple inflammation [Not Recovered/Not Resolved]
  - Eczema [Unknown]

NARRATIVE: CASE EVENT DATE: 20240801
